FAERS Safety Report 7091440-3 (Version None)
Quarter: 2010Q4

REPORT INFORMATION
  Report Type: 
  Country: None (occurrence: None)
  Receive Date: 20101105
  Receipt Date: 20101105
  Transmission Date: 20110411
  Serious: Yes (Other)
  Sender: FDA-Public Use
  Company Number: None

PATIENT
  Age: 81 Year
  Sex: Male
  Weight: 54.2956 kg

DRUGS (1)
  1. CABAZITAXEL 20 MG/M2 SANOFI-AVENTIS [Suspect]
     Indication: PROSTATE CANCER
     Dosage: 34MG Q4WKS IV DRIP
     Route: 041
     Dates: start: 20100824, end: 20101027

REACTIONS (1)
  - DEAFNESS NEUROSENSORY [None]
